FAERS Safety Report 11588286 (Version 2)
Quarter: 2016Q3

REPORT INFORMATION
  Report Type: Spontaneous
  Country: US (occurrence: US)
  Receive Date: 20151002
  Receipt Date: 20160927
  Transmission Date: 20161109
  Serious: No
  Sender: FDA-Public Use
  Company Number: US-RECORDATI RARE DISEASES-US-R13005-15-00073

PATIENT

DRUGS (1)
  1. PANHEMATIN [Suspect]
     Active Substance: HEMIN
     Indication: PRODUCT USED FOR UNKNOWN INDICATION
     Route: 065

REACTIONS (2)
  - Underdose [Unknown]
  - Off label use [Unknown]
